FAERS Safety Report 11500591 (Version 1)
Quarter: 2015Q3

REPORT INFORMATION
  Report Type: Spontaneous
  Country: US (occurrence: None)
  Receive Date: 20150911
  Receipt Date: 20150911
  Transmission Date: 20151125
  Serious: Yes (Death, Congenital Anomaly)
  Sender: FDA-Public Use
  Company Number: None

PATIENT
  Age: 24 Year
  Sex: Female
  Weight: 58.97 kg

DRUGS (3)
  1. TYLENOL [Concomitant]
     Active Substance: ACETAMINOPHEN
  2. TRI-SPRINTEC [Suspect]
     Active Substance: ETHINYL ESTRADIOL\NORGESTIMATE
     Indication: CONTRACEPTION
     Route: 048
  3. PRENATAL VITAMINS [Concomitant]
     Active Substance: VITAMINS

REACTIONS (15)
  - Congenital renal disorder [None]
  - Pregnancy on oral contraceptive [None]
  - Talipes [None]
  - Congenital nose malformation [None]
  - Anomaly of orbit, congenital [None]
  - Maternal exposure during pregnancy [None]
  - Trisomy 13 [None]
  - Hypoplastic left heart syndrome [None]
  - Neural tube defect [None]
  - Cleft lip and palate [None]
  - Maternal drugs affecting foetus [None]
  - Holoprosencephaly [None]
  - Polydactyly [None]
  - Stillbirth [None]
  - Premature delivery [None]

NARRATIVE: CASE EVENT DATE: 20150123
